FAERS Safety Report 20555116 (Version 3)
Quarter: 2022Q2

REPORT INFORMATION
  Report Type: Spontaneous
  Country: CN (occurrence: None)
  Receive Date: 20220304
  Receipt Date: 20220418
  Transmission Date: 20220721
  Serious: Yes (Other)
  Sender: FDA-Public Use
  Company Number: CN-ROCHE-3034771

PATIENT
  Age: 51 Year
  Sex: Male

DRUGS (7)
  1. AVASTIN [Suspect]
     Active Substance: BEVACIZUMAB
     Indication: Lung adenocarcinoma
     Route: 065
     Dates: start: 20200724
  2. ALECTINIB [Suspect]
     Active Substance: ALECTINIB
     Indication: Lung adenocarcinoma
     Dosage: 06/OCT/2021, 10/DEC/2021
     Route: 065
  3. CRIZOTINIB [Concomitant]
     Active Substance: CRIZOTINIB
     Indication: Lung adenocarcinoma
     Route: 048
     Dates: start: 201812
  4. CERITINIB [Concomitant]
     Active Substance: CERITINIB
     Indication: Lung adenocarcinoma
     Dates: start: 202002
  5. PEMETREXED [Concomitant]
     Active Substance: PEMETREXED
     Indication: Lung adenocarcinoma
     Dosage: BEVACIZUMAB + PEMETREXED + NEDAPLATIN
     Route: 065
     Dates: start: 20200724
  6. NEDAPLATIN [Concomitant]
     Active Substance: NEDAPLATIN
     Indication: Lung adenocarcinoma
     Dosage: BEVACIZUMAB + PEMETREXED + NEDAPLATIN
     Route: 065
     Dates: start: 20200724
  7. DOCETAXEL [Concomitant]
     Active Substance: DOCETAXEL
     Indication: Lung adenocarcinoma
     Route: 065
     Dates: start: 202102

REACTIONS (6)
  - Constipation [Unknown]
  - Nausea [Unknown]
  - Alanine aminotransferase increased [Recovered/Resolved]
  - Myelosuppression [Unknown]
  - Cancer pain [Recovering/Resolving]
  - Central nervous system lesion [Unknown]
